FAERS Safety Report 21389857 (Version 1)
Quarter: 2022Q3

REPORT INFORMATION
  Report Type: Report from Study
  Country: CA (occurrence: CA)
  Receive Date: 20220929
  Receipt Date: 20220929
  Transmission Date: 20221027
  Serious: Yes (Hospitalization, Other)
  Sender: FDA-Public Use
  Company Number: CA-JNJFOC-20220509123

PATIENT
  Age: 78 Year
  Sex: Male

DRUGS (13)
  1. MACITENTAN [Suspect]
     Active Substance: MACITENTAN
     Indication: Pulmonary hypertension
     Route: 048
     Dates: start: 20220412
  2. NITROGLYCERIN [Concomitant]
     Active Substance: NITROGLYCERIN
  3. VITALUX [CALCIUM PANTOTHENATE;CYANOCOBALAMIN;NICOTINAMIDE;PYRIDOXINE H [Concomitant]
  4. OLODATEROL HYDROCHLORIDE\TIOTROPIUM BROMIDE MONOHYDRATE [Concomitant]
     Active Substance: OLODATEROL HYDROCHLORIDE\TIOTROPIUM BROMIDE MONOHYDRATE
  5. VENTOLIN [Concomitant]
     Active Substance: ALBUTEROL SULFATE
  6. LOPRESSOR [Concomitant]
     Active Substance: METOPROLOL TARTRATE
  7. LOSEC [Concomitant]
     Active Substance: OMEPRAZOLE
  8. LIPITOR [Concomitant]
     Active Substance: ATORVASTATIN CALCIUM
  9. ERGOCALCIFEROL [Concomitant]
     Active Substance: ERGOCALCIFEROL
     Dosage: 1000
  10. ASPIRIN [Concomitant]
     Active Substance: ASPIRIN
  11. NORVASC [Concomitant]
     Active Substance: AMLODIPINE BESYLATE
  12. AVALIDE [Concomitant]
     Active Substance: HYDROCHLOROTHIAZIDE\IRBESARTAN
  13. TADALAFIL [Concomitant]
     Active Substance: TADALAFIL

REACTIONS (4)
  - Pulmonary oedema [Recovering/Resolving]
  - Gout [Not Recovered/Not Resolved]
  - Dyspnoea exertional [Not Recovered/Not Resolved]
  - Erythema [Recovered/Resolved]

NARRATIVE: CASE EVENT DATE: 20220401
